FAERS Safety Report 7163358 (Version 4)
Quarter: 2012Q4

REPORT INFORMATION
  Report Type: Report from Study
  Country: ES (occurrence: ES)
  Receive Date: 20091030
  Receipt Date: 20121121
  Transmission Date: 20130627
  Serious: Yes (Hospitalization, Other)
  Sender: FDA-Public Use
  Company Number: ES-ABBOTT-09P-144-0604145-01

PATIENT
  Age: 25 Year
  Sex: Female
  Weight: 84 kg

DRUGS (3)
  1. HUMIRA [Suspect]
     Indication: CROHN^S DISEASE
     Route: 058
     Dates: start: 20090320, end: 20090706
  2. PREDNISONE [Concomitant]
     Indication: INFLAMMATORY BOWEL DISEASE
     Dates: start: 20090520
  3. IMUREL [Concomitant]
     Indication: CROHN^S DISEASE
     Dates: start: 20020211

REACTIONS (6)
  - Peritonitis [Recovered/Resolved]
  - Abdominal abscess [None]
  - Renal failure [None]
  - Septic shock [None]
  - Crohn^s disease [None]
  - Infection in an immunocompromised host [None]
